FAERS Safety Report 12037684 (Version 1)
Quarter: 2016Q1

REPORT INFORMATION
  Report Type: Spontaneous
  Country: None (occurrence: None)
  Receive Date: 20160205
  Receipt Date: 20160205
  Transmission Date: 20160526
  Serious: No
  Sender: FDA-Public Use
  Company Number: None

PATIENT
  Sex: Female

DRUGS (2)
  1. EFUDEX [Suspect]
     Active Substance: FLUOROURACIL
  2. ALDARA [Suspect]
     Active Substance: IMIQUIMOD

REACTIONS (1)
  - Unevaluable event [None]
